FAERS Safety Report 19508043 (Version 3)
Quarter: 2021Q3

REPORT INFORMATION
  Report Type: Spontaneous
  Country: US (occurrence: US)
  Receive Date: 20210708
  Receipt Date: 20210920
  Transmission Date: 20211014
  Serious: Yes (Hospitalization)
  Sender: FDA-Public Use
  Company Number: US-PFIZER INC-2021796058

PATIENT
  Age: 52 Year
  Sex: Male

DRUGS (2)
  1. XELJANZ XR [Suspect]
     Active Substance: TOFACITINIB CITRATE
     Dosage: 11 MG
     Dates: start: 20210511
  2. XELJANZ XR [Suspect]
     Active Substance: TOFACITINIB CITRATE
     Dosage: 11 MG
     Dates: start: 20210713

REACTIONS (10)
  - Acne [Unknown]
  - Nail discolouration [Unknown]
  - Blood pressure increased [Unknown]
  - Rash [Unknown]
  - Dermatitis acneiform [Unknown]
  - Pain [Unknown]
  - Product dose omission issue [Unknown]
  - Gun shot wound [Unknown]
  - Paraesthesia [Unknown]
  - Memory impairment [Unknown]

NARRATIVE: CASE EVENT DATE: 2021
